FAERS Safety Report 4663806-X (Version None)
Quarter: 2005Q2

REPORT INFORMATION
  Report Type: 
  Country: None (occurrence: None)
  Receive Date: 20050511
  Receipt Date: 20050329
  Transmission Date: 20051028
  Serious: Yes (Other)
  Sender: FDA-Public Use
  Company Number: 400264

PATIENT
  Age: 35 Year
  Sex: Female

DRUGS (2)
  1. PEGASYS [Suspect]
     Dosage: 135 MGC, OTHER
     Route: 050
     Dates: start: 20041231
  2. COPEGUS [Suspect]
     Dosage: ORAL
     Route: 048
     Dates: start: 20041231

REACTIONS (7)
  - DISTURBANCE IN ATTENTION [None]
  - FATIGUE [None]
  - MEMORY IMPAIRMENT [None]
  - MOOD ALTERED [None]
  - NEUTROPENIA [None]
  - RASH [None]
  - WHITE BLOOD CELL COUNT DECREASED [None]
